FAERS Safety Report 7347077 (Version 2)
Quarter: 2013Q3

REPORT INFORMATION
  Report Type: Spontaneous
  Country: DE (occurrence: None)
  Receive Date: 20100322
  Receipt Date: 20130708
  Transmission Date: 20140515
  Serious: Yes (Other)
  Sender: FDA-Public Use
  Company Number: AUR-APL-2010-00678

PATIENT
  Age: 62 Year
  Sex: Female

DRUGS (2)
  1. RIBAVIRIN [Suspect]
     Indication: HEPATITIS C
     Dosage: 1000MG-QD
     Dates: start: 200609
  2. PEG-IFN-ALFA 2B [Concomitant]

REACTIONS (3)
  - Jaundice [None]
  - Anaemia [None]
  - Hyperbilirubinaemia [None]
